FAERS Safety Report 7118577-4 (Version None)
Quarter: 2010Q4

REPORT INFORMATION
  Report Type: 
  Country: None (occurrence: None)
  Receive Date: 20101123
  Receipt Date: 20101116
  Transmission Date: 20110411
  Serious: Yes (Hospitalization)
  Sender: FDA-Public Use
  Company Number: FR-SANOFI-AVENTIS-2010SA051058

PATIENT
  Age: 94 Year
  Sex: Female

DRUGS (5)
  1. LASIX [Suspect]
     Route: 048
     Dates: end: 20100727
  2. ACETAMINOPHEN W/ PROPOXYPHENE HCL [Suspect]
     Route: 048
     Dates: end: 20100727
  3. BIPROFENID [Suspect]
     Route: 048
     Dates: end: 20100727
  4. ENALAPRIL [Suspect]
     Route: 048
     Dates: end: 20100727
  5. EUPANTOL [Suspect]
     Route: 048
     Dates: end: 20100727

REACTIONS (2)
  - HYPONATRAEMIA [None]
  - INAPPROPRIATE ANTIDIURETIC HORMONE SECRETION [None]
